FAERS Safety Report 12787553 (Version 5)
Quarter: 2019Q2

REPORT INFORMATION
  Report Type: Report from Study
  Country: US (occurrence: US)
  Receive Date: 20160928
  Receipt Date: 20190619
  Transmission Date: 20190711
  Serious: No
  Sender: FDA-Public Use
  Company Number: PHHY2016US133233

PATIENT
  Age: 28 Year
  Sex: Female
  Weight: 62.5 kg

DRUGS (27)
  1. ZENPEP [Concomitant]
     Active Substance: PANCRELIPASE AMYLASE\PANCRELIPASE LIPASE\PANCRELIPASE PROTEASE
     Indication: PANCREATIC FAILURE
     Dosage: 15000 U, BEFORE MEALS
     Route: 048
     Dates: start: 20150101
  2. CIPROFLOXACIN. [Concomitant]
     Active Substance: CIPROFLOXACIN
     Indication: INFECTIVE PULMONARY EXACERBATION OF CYSTIC FIBROSIS
     Dosage: UNK
     Route: 065
     Dates: start: 20150126, end: 20150210
  3. CAYSTON [Suspect]
     Active Substance: AZTREONAM
     Indication: PRODUCT USED FOR UNKNOWN INDICATION
     Dosage: UNK
     Route: 065
     Dates: start: 20160308, end: 20160405
  4. OMEPRAZOLE. [Concomitant]
     Active Substance: OMEPRAZOLE
     Indication: GASTROOESOPHAGEAL REFLUX DISEASE
     Dosage: UNK UNK, QD
     Route: 048
     Dates: start: 20150801
  5. PROZAC [Concomitant]
     Active Substance: FLUOXETINE HYDROCHLORIDE
     Indication: DEPRESSION
     Dosage: UNK UNK, QD
     Route: 048
     Dates: start: 20140101
  6. KLONOPIN [Concomitant]
     Active Substance: CLONAZEPAM
     Indication: MIXED ANXIETY AND DEPRESSIVE DISORDER
     Dosage: UNK
     Route: 065
     Dates: start: 20150101, end: 20150825
  7. FLONASE [Concomitant]
     Active Substance: FLUTICASONE PROPIONATE
     Indication: CHRONIC SINUSITIS
     Dosage: UNK UNK, QD
     Route: 045
     Dates: start: 20140101
  8. CAYSTON [Concomitant]
     Active Substance: AZTREONAM
     Indication: PSEUDOMONAS INFECTION
     Dosage: UNK UNK, TID
     Route: 055
     Dates: start: 20141202
  9. DEPO-PROVERA [Concomitant]
     Active Substance: MEDROXYPROGESTERONE ACETATE
     Indication: CONTRACEPTION
     Dosage: UNK
     Route: 065
     Dates: start: 20150101, end: 20150101
  10. TOBI PODHALER [Suspect]
     Active Substance: TOBRAMYCIN
     Indication: CYSTIC FIBROSIS
     Route: 055
  11. ALBUTEROL SULFATE. [Concomitant]
     Active Substance: ALBUTEROL SULFATE
     Indication: CHEST DISCOMFORT
     Dosage: UNK
     Route: 065
     Dates: start: 20150707
  12. DEPAKOTE [Concomitant]
     Active Substance: DIVALPROEX SODIUM
     Indication: BIPOLAR DISORDER
     Dosage: UNK
     Route: 065
     Dates: start: 20140201, end: 20150825
  13. PULMOZYME [Concomitant]
     Active Substance: DORNASE ALFA
     Indication: SECRETION DISCHARGE
     Dosage: UNK UNK, BID
     Route: 055
     Dates: start: 20140409
  14. CAYSTON [Concomitant]
     Active Substance: AZTREONAM
     Dosage: UNK
     Route: 065
     Dates: start: 20160308, end: 20160405
  15. HYPERTONIC SALINE SOLUTION [Concomitant]
     Active Substance: SODIUM CHLORIDE
     Indication: SECRETION DISCHARGE
     Dosage: UNK
     Route: 065
     Dates: start: 20151201
  16. XANAX [Concomitant]
     Active Substance: ALPRAZOLAM
     Indication: DEPRESSION
     Dosage: UNK
     Route: 065
     Dates: start: 20141202, end: 20150701
  17. CREON [Concomitant]
     Active Substance: PANCRELIPASE AMYLASE\PANCRELIPASE LIPASE\PANCRELIPASE PROTEASE
     Indication: PANCREATIC FAILURE
     Dosage: UNK
     Route: 065
     Dates: start: 20140201, end: 20150101
  18. HYPERSOL [Concomitant]
     Indication: PRODUCT USED FOR UNKNOWN INDICATION
     Dosage: UNK UNK, BID
     Route: 055
     Dates: start: 20151201
  19. GABAPENTIN. [Concomitant]
     Active Substance: GABAPENTIN
     Indication: RESTLESS LEGS SYNDROME
     Dosage: UNK
     Route: 065
     Dates: start: 20140201, end: 20141201
  20. AZITHROMYCIN ANHYDROUS. [Concomitant]
     Active Substance: AZITHROMYCIN ANHYDROUS
     Indication: PROPHYLAXIS
     Dosage: UNK
     Route: 065
     Dates: start: 20141202, end: 20150101
  21. ZOLOFT [Concomitant]
     Active Substance: SERTRALINE HYDROCHLORIDE
     Indication: DEPRESSION
     Dosage: UNK
     Route: 065
     Dates: start: 20141202, end: 20150701
  22. SPIRIVA [Concomitant]
     Active Substance: TIOTROPIUM BROMIDE MONOHYDRATE
     Indication: CHEST DISCOMFORT
     Dosage: UNK UNK, QD
     Route: 055
     Dates: start: 20160316
  23. ORKAMBI [Concomitant]
     Active Substance: IVACAFTOR\LUMACAFTOR
     Indication: PRODUCT USED FOR UNKNOWN INDICATION
     Dosage: UNK UNK, Q12H
     Route: 048
     Dates: start: 20150811
  24. ZANTAC [Concomitant]
     Active Substance: RANITIDINE HYDROCHLORIDE
     Indication: GASTROOESOPHAGEAL REFLUX DISEASE
     Dosage: UNK
     Route: 065
     Dates: start: 20150101
  25. SINGULAIR [Concomitant]
     Active Substance: MONTELUKAST SODIUM
     Indication: CHRONIC SINUSITIS
     Dosage: UNK
     Route: 065
     Dates: start: 20140101
  26. TOBRAMYCIN. [Concomitant]
     Active Substance: TOBRAMYCIN
     Indication: PSEUDOMONAS INFECTION
     Dosage: UNK
     Route: 065
     Dates: start: 20141202, end: 20150701
  27. VANCOMYCIN [Concomitant]
     Active Substance: VANCOMYCIN
     Indication: INFECTIVE PULMONARY EXACERBATION OF CYSTIC FIBROSIS
     Dosage: UNK
     Route: 065
     Dates: start: 20150126, end: 20150210

REACTIONS (4)
  - Maternal exposure during pregnancy [Unknown]
  - Chest discomfort [Recovered/Resolved]
  - Staphylococcus test positive [Unknown]
  - Dyspnoea [Recovered/Resolved]

NARRATIVE: CASE EVENT DATE: 20160310
